FAERS Safety Report 15966433 (Version 5)
Quarter: 2020Q3

REPORT INFORMATION
  Report Type: Report from Study
  Country: CA (occurrence: CA)
  Receive Date: 20190215
  Receipt Date: 20200819
  Transmission Date: 20201102
  Serious: Yes (Other)
  Sender: FDA-Public Use
  Company Number: PHHY2018CA033303

PATIENT
  Age: 82 Year
  Sex: Female

DRUGS (14)
  1. COSENTYX [Suspect]
     Active Substance: SECUKINUMAB
     Dosage: 150 MG, QW
     Route: 058
     Dates: start: 20180308
  2. COSENTYX [Suspect]
     Active Substance: SECUKINUMAB
     Dosage: 150 MG, QMO
     Route: 058
     Dates: start: 2018
  3. SIMPONI [Concomitant]
     Active Substance: GOLIMUMAB
     Indication: PRODUCT USED FOR UNKNOWN INDICATION
     Dosage: UNK
     Route: 065
  4. IMURAN [Concomitant]
     Active Substance: AZATHIOPRINE
     Indication: PRODUCT USED FOR UNKNOWN INDICATION
     Dosage: UNK
     Route: 065
  5. METHOTREXATE. [Concomitant]
     Active Substance: METHOTREXATE
     Indication: PRODUCT USED FOR UNKNOWN INDICATION
     Dosage: UNK
     Route: 065
  6. CELEBREX [Concomitant]
     Active Substance: CELECOXIB
     Indication: PRODUCT USED FOR UNKNOWN INDICATION
     Dosage: UNK
     Route: 065
  7. COSENTYX [Suspect]
     Active Substance: SECUKINUMAB
     Indication: PSORIATIC ARTHROPATHY
     Dosage: 150 MG, QW (PREFILLED SYRINGE)
     Route: 058
     Dates: start: 20180222
  8. ENBREL [Concomitant]
     Active Substance: ETANERCEPT
     Indication: PRODUCT USED FOR UNKNOWN INDICATION
     Dosage: UNK
     Route: 065
  9. PANTOLOC [Concomitant]
     Active Substance: PANTOPRAZOLE SODIUM
     Indication: PRODUCT USED FOR UNKNOWN INDICATION
     Dosage: UNK
     Route: 065
  10. PLAQUENIL [Concomitant]
     Active Substance: HYDROXYCHLOROQUINE SULFATE
     Indication: PRODUCT USED FOR UNKNOWN INDICATION
     Dosage: UNK
     Route: 065
  11. SULFASALAZINE. [Concomitant]
     Active Substance: SULFASALAZINE
     Indication: PRODUCT USED FOR UNKNOWN INDICATION
     Dosage: UNK
     Route: 065
  12. COSENTYX [Suspect]
     Active Substance: SECUKINUMAB
     Dosage: 150 MG, QMO
     Route: 058
     Dates: start: 20190122
  13. HUMIRA [Concomitant]
     Active Substance: ADALIMUMAB
     Indication: PRODUCT USED FOR UNKNOWN INDICATION
     Dosage: UNK
     Route: 065
  14. PREDNISONE. [Concomitant]
     Active Substance: PREDNISONE
     Indication: PRODUCT USED FOR UNKNOWN INDICATION
     Dosage: UNK UNK, PRN
     Route: 065

REACTIONS (28)
  - Pain in extremity [Not Recovered/Not Resolved]
  - Myalgia [Unknown]
  - Peripheral swelling [Unknown]
  - Breast cancer [Unknown]
  - Oropharyngeal pain [Unknown]
  - Scapholunate dissociation [Unknown]
  - Neuropathy peripheral [Unknown]
  - Chest discomfort [Unknown]
  - Middle insomnia [Unknown]
  - Osteoarthritis [Unknown]
  - Sinusitis [Unknown]
  - Soft tissue swelling [Unknown]
  - Back pain [Not Recovered/Not Resolved]
  - Nasal congestion [Unknown]
  - Arthritis [Recovering/Resolving]
  - Arthralgia [Unknown]
  - Musculoskeletal stiffness [Unknown]
  - Fibromyalgia [Unknown]
  - Energy increased [Unknown]
  - Sciatica [Unknown]
  - Musculoskeletal pain [Unknown]
  - Paraesthesia [Unknown]
  - Wheezing [Unknown]
  - Neuralgia [Unknown]
  - Spondylolisthesis [Unknown]
  - Joint dislocation [Unknown]
  - Hypoaesthesia [Unknown]
  - Joint space narrowing [Unknown]

NARRATIVE: CASE EVENT DATE: 20180222
